FAERS Safety Report 5185306-3 (Version None)
Quarter: 2006Q4

REPORT INFORMATION
  Report Type: 
  Country: None (occurrence: None)
  Receive Date: 20061220
  Receipt Date: 20061211
  Transmission Date: 20070319
  Serious: Yes (Death, Other)
  Sender: FDA-Public Use
  Company Number: ES-ELI_LILLY_AND_COMPANY-ES200612001451

PATIENT
  Age: 78 Year
  Sex: Female

DRUGS (4)
  1. FORTEO [Suspect]
     Indication: OSTEOPOROSIS
     Dosage: 20 UG, DAILY (1/D)
     Route: 058
     Dates: start: 20040101, end: 20061101
  2. DACORTIN [Concomitant]
  3. ACETAMINOPHEN [Concomitant]
  4. ANTIBIOTICS [Concomitant]

REACTIONS (3)
  - CARDIAC ARREST [None]
  - HAEMORRHAGE [None]
  - RENAL FAILURE ACUTE [None]
